FAERS Safety Report 25851352 (Version 3)
Quarter: 2025Q4

REPORT INFORMATION
  Report Type: Report from Study
  Country: CA (occurrence: CA)
  Receive Date: 20250926
  Receipt Date: 20251007
  Transmission Date: 20260117
  Serious: Yes (Hospitalization)
  Sender: BIOGEN
  Company Number: CA-BIOGEN-2025BI01324604

PATIENT
  Age: 16 Year
  Sex: Female

DRUGS (2)
  1. SKYCLARYS [Suspect]
     Active Substance: OMAVELOXOLONE
     Indication: Friedreich^s ataxia
     Route: 050
     Dates: start: 20250313
  2. SKYCLARYS [Suspect]
     Active Substance: OMAVELOXOLONE
     Route: 050
     Dates: start: 20250708

REACTIONS (4)
  - Carditis [Recovered/Resolved]
  - Scoliosis [Not Recovered/Not Resolved]
  - Influenza [Recovered/Resolved]
  - Prescribed underdose [Unknown]

NARRATIVE: CASE EVENT DATE: 20250601
